FAERS Safety Report 22271535 (Version 2)
Quarter: 2023Q2

REPORT INFORMATION
  Report Type: Spontaneous
  Country: PH (occurrence: None)
  Receive Date: 20230502
  Receipt Date: 20230614
  Transmission Date: 20230721
  Serious: Yes (Hospitalization)
  Sender: FDA-Public Use
  Company Number: 2023A096396

PATIENT
  Age: 27656 Day
  Sex: Male

DRUGS (1)
  1. IMFINZI [Suspect]
     Active Substance: DURVALUMAB
     Indication: Hepatic cancer
     Dosage: 500.0MG UNKNOWN
     Route: 042
     Dates: start: 20230414

REACTIONS (2)
  - Haematemesis [Unknown]
  - Melaena [Unknown]

NARRATIVE: CASE EVENT DATE: 20230422
